FAERS Safety Report 10263024 (Version 2)
Quarter: 2014Q2

REPORT INFORMATION
  Report Type: Report from Study
  Country: US (occurrence: US)
  Receive Date: 20140626
  Receipt Date: 20140626
  Transmission Date: 20141212
  Serious: Yes (Death)
  Sender: FDA-Public Use
  Company Number: US-MYLANLABS-2013S1027111

PATIENT
  Age: 51 Year
  Sex: Male

DRUGS (7)
  1. CLOZAPINE TABLETS [Suspect]
  2. SENNA [Concomitant]
  3. OMEPRAZOLE [Concomitant]
  4. COMBIVENT [Concomitant]
  5. GABAPENTIN [Concomitant]
  6. HALOPERIDOL [Concomitant]
  7. AMANTADINE [Concomitant]

REACTIONS (1)
  - Death [Fatal]
